FAERS Safety Report 11414733 (Version 3)
Quarter: 2015Q4

REPORT INFORMATION
  Report Type: Spontaneous
  Country: IT (occurrence: IT)
  Receive Date: 20150825
  Receipt Date: 20151224
  Transmission Date: 20160304
  Serious: Yes (Other)
  Sender: FDA-Public Use
  Company Number: IT-AUROBINDO-AUR-APL-2015-07345

PATIENT
  Age: 32 Year
  Sex: Female
  Weight: 67 kg

DRUGS (1)
  1. AMOXICILLIN 1G [Suspect]
     Active Substance: AMOXICILLIN
     Indication: URTICARIA
     Dosage: 1 G DAILY
     Route: 048
     Dates: start: 20150730, end: 20150730

REACTIONS (3)
  - Angioedema [Recovered/Resolved]
  - Off label use [Unknown]
  - Solar urticaria [Unknown]

NARRATIVE: CASE EVENT DATE: 20150730
